FAERS Safety Report 22165228 (Version 2)
Quarter: 2023Q2

REPORT INFORMATION
  Report Type: Spontaneous
  Country: AR (occurrence: AR)
  Receive Date: 20230403
  Receipt Date: 20230411
  Transmission Date: 20230722
  Serious: Yes (Hospitalization, Other)
  Sender: FDA-Public Use
  Company Number: AR-TAKEDA-2023TUS033051

PATIENT
  Sex: Female
  Weight: 42 kg

DRUGS (7)
  1. TEDUGLUTIDE [Suspect]
     Active Substance: TEDUGLUTIDE
     Indication: Product used for unknown indication
     Dosage: UNK
     Route: 065
  2. TEDUGLUTIDE [Suspect]
     Active Substance: TEDUGLUTIDE
     Indication: Product used for unknown indication
     Dosage: UNK
     Route: 065
  3. TEDUGLUTIDE [Suspect]
     Active Substance: TEDUGLUTIDE
     Indication: Product used for unknown indication
     Dosage: UNK
     Route: 065
  4. TEDUGLUTIDE [Suspect]
     Active Substance: TEDUGLUTIDE
     Indication: Product used for unknown indication
     Dosage: UNK
     Route: 065
  5. FONDAPARINUX [Concomitant]
     Active Substance: FONDAPARINUX
     Dosage: UNK
     Route: 058
  6. BUDESONIDE [Concomitant]
     Active Substance: BUDESONIDE
  7. LOPERAMIDE [Concomitant]
     Active Substance: LOPERAMIDE

REACTIONS (2)
  - Device related infection [Unknown]
  - Product use issue [Unknown]
